FAERS Safety Report 19372894 (Version 1)
Quarter: 2021Q2

REPORT INFORMATION
  Report Type: Spontaneous
  Country: GB (occurrence: GB)
  Receive Date: 20210604
  Receipt Date: 20210604
  Transmission Date: 20210717
  Serious: Yes (Hospitalization, Other)
  Sender: FDA-Public Use
  Company Number: GB-ASTRAZENECA-2021A471767

PATIENT
  Sex: Female

DRUGS (5)
  1. VITAMIN D [Concomitant]
     Active Substance: VITAMIN D NOS
  2. LOPERAMIDE [Concomitant]
     Active Substance: LOPERAMIDE
  3. OMEPRAZOLE. [Suspect]
     Active Substance: OMEPRAZOLE
     Indication: PRODUCT USED FOR UNKNOWN INDICATION
     Dosage: TEVA20.0MG UNKNOWN
     Route: 065
  4. OMEPRAZOLE. [Suspect]
     Active Substance: OMEPRAZOLE
     Indication: PRODUCT USED FOR UNKNOWN INDICATION
     Dosage: 20.0MG UNKNOWN
     Route: 065
  5. CREON [Concomitant]
     Active Substance: PANCRELIPASE AMYLASE\PANCRELIPASE LIPASE\PANCRELIPASE PROTEASE

REACTIONS (3)
  - Malaise [Unknown]
  - Pancreatitis [Unknown]
  - Cholecystectomy [Unknown]
